FAERS Safety Report 6237666-X (Version None)
Quarter: 2009Q2

REPORT INFORMATION
  Report Type: 
  Country: None (occurrence: None)
  Receive Date: 20090609
  Receipt Date: 20090521
  Transmission Date: 20091009
  Serious: No
  Sender: FDA-Public Use
  Company Number: M2009-012

PATIENT
  Age: 27 Year
  Sex: Female
  Weight: 49.8957 kg

DRUGS (3)
  1. CPP E RIVERA MIX # M2009-12-1 STD NGLY 1-500 V/V HOLLIST-STIER [Suspect]
     Indication: ANTIALLERGIC THERAPY
     Dosage: 0.01ML WEEKLY INJECTION
     Dates: start: 20090301
  2. CPP E RIVERA MIX # M2009-12-2 STD NGLY 1-100 V/V HOLLIST-STIER [Suspect]
     Indication: ANTIALLERGIC THERAPY
     Dosage: 0.05 ML WEEKLY INJECTION
     Dates: start: 20090301
  3. CPP E RIVERA MIX # M2009-12-3 NSTD NGLY UNK HOLLIST-STIER [Suspect]
     Indication: ANTIALLERGIC THERAPY
     Dosage: WEEKLY INJECTION
     Dates: start: 20090301

REACTIONS (3)
  - CHEMICAL BURN OF SKIN [None]
  - INJECTION SITE ERYTHEMA [None]
  - INJECTION SITE URTICARIA [None]
